FAERS Safety Report 9628850 (Version 2)
Quarter: 2013Q4

REPORT INFORMATION
  Report Type: Spontaneous
  Country: US (occurrence: US)
  Receive Date: 20131017
  Receipt Date: 20131112
  Transmission Date: 20140711
  Serious: Yes (Death, Hospitalization, Other)
  Sender: FDA-Public Use
  Company Number: US-AMGEN-USASP2013072060

PATIENT
  Age: 81 Year
  Sex: Female

DRUGS (1)
  1. PROLIA [Suspect]
     Indication: OSTEOPOROSIS POSTMENOPAUSAL
     Dosage: 60 MG, Q6MO
     Route: 065

REACTIONS (23)
  - Death [Fatal]
  - Colitis ischaemic [Unknown]
  - Atrial fibrillation [Unknown]
  - Atrial flutter [Unknown]
  - Cardiac failure congestive [Unknown]
  - Renal failure chronic [Unknown]
  - Depression [Unknown]
  - Myocardial infarction [Unknown]
  - Ovarian cyst [Unknown]
  - Chronic obstructive pulmonary disease [Unknown]
  - Pleural effusion [Unknown]
  - Coronary artery disease [Unknown]
  - White blood cell count increased [Unknown]
  - Abdominal pain [Unknown]
  - Hypotension [Unknown]
  - Hypertension [Unknown]
  - Deep vein thrombosis [Unknown]
  - Carbohydrate antigen 125 increased [Unknown]
  - Pyrexia [Unknown]
  - Malnutrition [Unknown]
  - Pain [Unknown]
  - Anaemia [Unknown]
  - Asthenia [Unknown]
